FAERS Safety Report 15367613 (Version 2)
Quarter: 2018Q4

REPORT INFORMATION
  Report Type: Spontaneous
  Country: US (occurrence: US)
  Receive Date: 20180910
  Receipt Date: 20181019
  Transmission Date: 20190204
  Serious: No
  Sender: FDA-Public Use
  Company Number: US-BIOMARINAP-US-2018-119737

PATIENT
  Age: 28 Year
  Sex: Female

DRUGS (1)
  1. ALDURAZYME [Suspect]
     Active Substance: LARONIDASE
     Indication: MUCOPOLYSACCHARIDOSIS I
     Dosage: 34.8 MILLIGRAM, QW
     Route: 041
     Dates: start: 20030915, end: 20180817

REACTIONS (1)
  - Ill-defined disorder [Unknown]
